FAERS Safety Report 7554009-X (Version None)
Quarter: 2011Q2

REPORT INFORMATION
  Report Type: 
  Country: None (occurrence: None)
  Receive Date: 20110614
  Receipt Date: 20110614
  Transmission Date: 20111010
  Serious: Yes (Other)
  Sender: FDA-Public Use
  Company Number: None

PATIENT
  Age: 49 Year
  Sex: Female
  Weight: 90.7194 kg

DRUGS (1)
  1. SINGULAIR [Suspect]
     Indication: RHINITIS
     Dosage: 10 MG 1X DAY PO
     Route: 048
     Dates: start: 20110510, end: 20110606

REACTIONS (6)
  - SINUSITIS [None]
  - RHINORRHOEA [None]
  - WHEEZING [None]
  - DYSPNOEA [None]
  - INFLUENZA LIKE ILLNESS [None]
  - LUNG DISORDER [None]
